FAERS Safety Report 8613512-1 (Version None)
Quarter: 2012Q3

REPORT INFORMATION
  Report Type: 
  Country: None (occurrence: None)
  Receive Date: 20120823
  Receipt Date: 20120818
  Transmission Date: 20120928
  Serious: Yes (Hospitalization)
  Sender: FDA-Public Use
  Company Number: GB-AMGEN-GBRSP2012052482

PATIENT
  Age: 50 Year
  Sex: Female

DRUGS (3)
  1. ANTINEOPLASTIC AGENTS [Concomitant]
     Indication: BREAST CANCER
  2. CIPROFLOXACIN [Concomitant]
     Indication: OPEN WOUND
  3. NEULASTA [Suspect]
     Indication: NEUTROPENIA
     Dosage: UNK

REACTIONS (1)
  - FEBRILE NEUTROPENIA [None]
